FAERS Safety Report 14314453 (Version 1)
Quarter: 2017Q4

REPORT INFORMATION
  Report Type: Other
  Country: US (occurrence: US)
  Receive Date: 20171221
  Receipt Date: 20171221
  Transmission Date: 20180321
  Serious: Yes (Hospitalization)
  Sender: FDA-Public Use
  Company Number: US-LEADIANT BIOSCIENCES INC-2017STPI000901

PATIENT
  Sex: Male

DRUGS (1)
  1. MATULANE [Suspect]
     Active Substance: PROCARBAZINE HYDROCHLORIDE
     Indication: GLIOBLASTOMA
     Dosage: 150 MG, DAYS 1 -21 OF EACH CYCLE
     Route: 048
     Dates: start: 20171024

REACTIONS (3)
  - Haematuria [Unknown]
  - Pancreatitis [Unknown]
  - Disorientation [Unknown]

NARRATIVE: CASE EVENT DATE: 2017
